FAERS Safety Report 11551310 (Version 1)
Quarter: 2015Q3

REPORT INFORMATION
  Report Type: Spontaneous
  Country: US (occurrence: US)
  Receive Date: 20150903
  Receipt Date: 20150903
  Transmission Date: 20151125
  Serious: No
  Sender: FDA-Public Use
  Company Number: US-ELI_LILLY_AND_COMPANY-US201208006751

PATIENT
  Age: 58 Year
  Sex: Male

DRUGS (3)
  1. HUMALOG [Suspect]
     Active Substance: INSULIN LISPRO
  2. STEROID ANTIBACTERIALS [Concomitant]
     Active Substance: UNSPECIFIED INGREDIENT
     Dosage: 80 MG, UNK
  3. HUMALOG [Suspect]
     Active Substance: INSULIN LISPRO

REACTIONS (2)
  - Visual impairment [Not Recovered/Not Resolved]
  - Memory impairment [Not Recovered/Not Resolved]
